FAERS Safety Report 6717506-2 (Version None)
Quarter: 2010Q2

REPORT INFORMATION
  Report Type: 
  Country: None (occurrence: None)
  Receive Date: 20100510
  Receipt Date: 20100506
  Transmission Date: 20101027
  Serious: Yes (Hospitalization)
  Sender: FDA-Public Use
  Company Number: FR-ROCHE-701580

PATIENT
  Sex: Female

DRUGS (14)
  1. CAPECITABINE [Suspect]
     Indication: ADENOCARCINOMA PANCREAS
     Dosage: FORM: FILM COATED TABLET TAKEN FROM PROTOCOL.
     Route: 048
     Dates: start: 20090302
  2. ERLOTINIB HYDROCHLORIDE [Suspect]
     Indication: ADENOCARCINOMA PANCREAS
     Dosage: FORM TAKEN FROM PROTOCOL.
     Route: 048
     Dates: start: 20090302
  3. ERLOTINIB HYDROCHLORIDE [Suspect]
     Route: 048
  4. GEMCITABINE HCL [Suspect]
     Indication: ADENOCARCINOMA PANCREAS
     Dosage: FORM: INFUSION TAKEN FROM PROTOCOL.
     Route: 042
     Dates: start: 20090302
  5. SECTRAL [Concomitant]
  6. VASTAREL [Concomitant]
     Indication: UNEVALUABLE EVENT
  7. CRESTOR [Concomitant]
  8. DI-ANTALVIC [Concomitant]
     Indication: ABDOMINAL PAIN
  9. SMECTA [Concomitant]
  10. EPO [Concomitant]
  11. FORTIMEL [Concomitant]
     Indication: ASTHENIA
  12. SARGENOR [Concomitant]
     Indication: ASTHENIA
  13. SPAGULAX [Concomitant]
     Indication: CONSTIPATION
  14. MICROLAX [Concomitant]

REACTIONS (2)
  - CONSTIPATION [None]
  - GASTROINTESTINAL HYPOMOTILITY [None]
